FAERS Safety Report 6677008-9 (Version None)
Quarter: 2010Q2

REPORT INFORMATION
  Report Type: 
  Country: None (occurrence: None)
  Receive Date: 20100412
  Receipt Date: 20100329
  Transmission Date: 20101027
  Serious: Yes (Hospitalization, Disabling)
  Sender: FDA-Public Use
  Company Number: ES-ELI_LILLY_AND_COMPANY-ES201003008110

PATIENT
  Sex: Female
  Weight: 92 kg

DRUGS (10)
  1. FORTEO [Suspect]
     Indication: OSTEOPOROSIS
     Dosage: 20 UG, DAILY (1/D)
     Route: 058
     Dates: start: 20090427, end: 20100317
  2. VENOSMIL [Concomitant]
     Dosage: 1 D/F, EVERY 8 HRS
     Route: 048
  3. INVEGA [Concomitant]
     Dosage: 1 D/F, DAILY (1/D)
     Route: 048
  4. SERTRALINE HCL [Concomitant]
     Dosage: 1 D/F, 2/D
     Route: 048
  5. PARAPRES [Concomitant]
     Dosage: 16 MG, DAILY (1/D)
     Route: 048
  6. TERTENSIF RETARD [Concomitant]
     Dosage: 1 D/F, DAILY (1/D)
     Route: 048
  7. LEXATIN [Concomitant]
     Dosage: 3 MG, EVERY 8 HRS
     Route: 048
  8. OMEPRAZOLE [Concomitant]
     Dosage: 20 MG, DAILY (1/D)
     Route: 048
  9. CONDROSULF [Concomitant]
     Dosage: 400 MG, DAILY (1/D)
     Route: 048
  10. ATARAX [Concomitant]
     Dosage: 1 D/F, DAILY (1/D)
     Route: 048

REACTIONS (1)
  - KNEE ARTHROPLASTY [None]
